FAERS Safety Report 7141300-4 (Version None)
Quarter: 2010Q4

REPORT INFORMATION
  Report Type: 
  Country: None (occurrence: None)
  Receive Date: 20101122
  Receipt Date: 20101108
  Transmission Date: 20110411
  Serious: Yes (Hospitalization)
  Sender: FDA-Public Use
  Company Number: DSA_44296_2010

PATIENT
  Age: 87 Year
  Sex: Male

DRUGS (1)
  1. ENALAPRIL MALEATE [Suspect]
     Indication: CORONARY ARTERY INSUFFICIENCY
     Dosage: (10 MG QD ORAL), (5 MG QD ORAL)
     Route: 048
     Dates: end: 20100728

REACTIONS (1)
  - BLOOD CREATININE INCREASED [None]
